FAERS Safety Report 8453952 (Version 1)
Quarter: 2012Q4

REPORT INFORMATION
  Report Type: 
  Country: RU (occurrence: US)
  Receive Date: 20120312
  Receipt Date: 20121106
  Transmission Date: 20130627
  Serious: Yes (Hospitalization, Disabling, Other)
  Sender: FDA-Public Use
  Company Number: US-MSD-1203USA01073

PATIENT

DRUGS (8)
  1. FOSAMAX [Suspect]
     Indication: OSTEOPOROSIS
     Dosage: 10 mg, qd
     Route: 048
     Dates: start: 19960401, end: 20010416
  2. FOSAMAX [Suspect]
     Dosage: 70 mg, qw
     Route: 048
     Dates: start: 20011211
  3. ALENDRONATE TEVA [Suspect]
     Indication: OSTEOPOROSIS
     Dosage: 70 mg, UNK
     Route: 048
     Dates: start: 20080804
  4. ALLEGRA [Concomitant]
     Dosage: UNK
     Dates: start: 200508
  5. CALCIUM (UNSPECIFIED) (+) VITAMIN D (UNSPECIFIED) [Concomitant]
     Dosage: 630 mg, bid
     Dates: start: 1997
  6. CALCIUM (UNSPECIFIED) (+) VITAMIN D (UNSPECIFIED) [Concomitant]
     Dosage: 1500
  7. CALCIUM (UNSPECIFIED) [Concomitant]
     Dosage: 1500 mg, qd
  8. VITAMIN D (UNSPECIFIED) [Concomitant]

REACTIONS (47)
  - Device failure [Unknown]
  - Atypical femur fracture [Unknown]
  - Adverse drug reaction [Unknown]
  - Low turnover osteopathy [Not Recovered/Not Resolved]
  - Anaemia [Unknown]
  - Deafness [Unknown]
  - Packed red blood cell transfusion [Unknown]
  - Surgery [Unknown]
  - Adenoidectomy [Unknown]
  - Skin cancer [Unknown]
  - Femur fracture [Recovered/Resolved]
  - Constipation [Unknown]
  - Nausea [Unknown]
  - Balance disorder [Unknown]
  - Limb asymmetry [Unknown]
  - Vitamin D deficiency [Unknown]
  - Hyperlipidaemia [Unknown]
  - Aortic arteriosclerosis [Unknown]
  - Arteriosclerosis coronary artery [Unknown]
  - Diverticulum [Unknown]
  - Osteopenia [Unknown]
  - Tonsillar disorder [Unknown]
  - Haemorrhoids [Unknown]
  - Osteoarthritis [Unknown]
  - Colon adenoma [Unknown]
  - Cataract [Unknown]
  - Cerumen impaction [Unknown]
  - Hypertension [Unknown]
  - Balance disorder [Unknown]
  - Paranasal cyst [Unknown]
  - Rhinitis [Unknown]
  - Vertigo positional [Unknown]
  - Arthropathy [Unknown]
  - Gait disturbance [Unknown]
  - Infection [Unknown]
  - Smear cervix abnormal [Unknown]
  - Fall [Unknown]
  - Mammogram abnormal [Unknown]
  - Bladder disorder [Unknown]
  - Calcinosis [Unknown]
  - Breast dysplasia [Unknown]
  - Patellofemoral pain syndrome [Unknown]
  - Nervousness [Unknown]
  - Wisdom teeth removal [Unknown]
  - Spinal column stenosis [Unknown]
  - Gastrooesophageal reflux disease [Unknown]
  - Back pain [Not Recovered/Not Resolved]
